FAERS Safety Report 20440347 (Version 1)
Quarter: 2022Q1

REPORT INFORMATION
  Report Type: Spontaneous
  Country: GB (occurrence: GB)
  Receive Date: 20220207
  Receipt Date: 20220207
  Transmission Date: 20220423
  Serious: Yes (Hospitalization, Disabling)
  Sender: FDA-Public Use
  Company Number: None

PATIENT
  Age: 66 Year
  Sex: Female

DRUGS (5)
  1. RIFAXIMIN [Interacting]
     Active Substance: RIFAXIMIN
     Indication: Encephalopathy
     Route: 048
     Dates: start: 201312
  2. SIMVASTATIN [Interacting]
     Active Substance: SIMVASTATIN
     Indication: Hypercholesterolaemia
     Route: 065
     Dates: start: 2004, end: 20140110
  3. LACTULOSE [Concomitant]
     Active Substance: LACTULOSE
     Indication: Product used for unknown indication
     Route: 048
  4. SPIRONOLACTONE [Concomitant]
     Active Substance: SPIRONOLACTONE
     Indication: Ascites
     Route: 048
  5. SPIRONOLACTONE [Concomitant]
     Active Substance: SPIRONOLACTONE
     Indication: Oedema

REACTIONS (5)
  - Rhabdomyolysis [Recovered/Resolved]
  - Drug interaction [Recovered/Resolved]
  - Immune-mediated myositis [Recovered/Resolved]
  - Hyperreflexia [Unknown]
  - Blood creatine phosphokinase increased [Recovered/Resolved]

NARRATIVE: CASE EVENT DATE: 20140104
